FAERS Safety Report 20963451 (Version 1)
Quarter: 2022Q2

REPORT INFORMATION
  Report Type: Report from Study
  Country: US (occurrence: US)
  Receive Date: 20220615
  Receipt Date: 20220615
  Transmission Date: 20220721
  Serious: Yes (Hospitalization)
  Sender: FDA-Public Use
  Company Number: US-ABBVIE-22K-163-4412609-00

PATIENT
  Sex: Male

DRUGS (2)
  1. VENCLEXTA [Suspect]
     Active Substance: VENETOCLAX
     Indication: Myelodysplastic syndrome
     Route: 048
     Dates: start: 20220503, end: 202205
  2. VENCLEXTA [Suspect]
     Active Substance: VENETOCLAX
     Route: 048
     Dates: start: 2022

REACTIONS (5)
  - Leukaemia [Unknown]
  - Febrile neutropenia [Unknown]
  - Decreased appetite [Unknown]
  - Constipation [Unknown]
  - Diarrhoea [Unknown]

NARRATIVE: CASE EVENT DATE: 20220101
